FAERS Safety Report 9653182 (Version 3)
Quarter: 2014Q4

REPORT INFORMATION
  Report Type: Spontaneous
  Country: US (occurrence: US)
  Receive Date: 20131029
  Receipt Date: 20141112
  Transmission Date: 20150529
  Serious: Yes (Other)
  Sender: FDA-Public Use
  Company Number: US-GLAXOSMITHKLINE-A1047209A

PATIENT
  Sex: Female

DRUGS (4)
  1. WARFARIN [Concomitant]
     Active Substance: WARFARIN
  2. OPSUMIT [Concomitant]
     Active Substance: MACITENTAN
  3. FLOLAN [Suspect]
     Active Substance: EPOPROSTENOL SODIUM
     Indication: COR PULMONALE CHRONIC
     Dosage: 27 NG/KG/MIN CONTINUOUSLY (CONCENTRATION 45,000 NG/ML; 1.5 MG VIAL STRENGTH, PUMP RATE 67ML/DAY).
     Route: 042
     Dates: start: 20010202
  4. FLOLAN [Suspect]
     Active Substance: EPOPROSTENOL SODIUM
     Dates: start: 20010202

REACTIONS (3)
  - Malaise [Unknown]
  - Central venous catheterisation [Unknown]
  - Ill-defined disorder [Unknown]
